FAERS Safety Report 11334904 (Version 1)
Quarter: 2015Q3

REPORT INFORMATION
  Report Type: Spontaneous
  Country: US (occurrence: US)
  Receive Date: 20150804
  Receipt Date: 20150804
  Transmission Date: 20151125
  Serious: Yes (Hospitalization, Other)
  Sender: FDA-Public Use
  Company Number: US-ROCHE-1616081

PATIENT
  Age: 34 Year
  Sex: Male

DRUGS (1)
  1. AVASTIN [Suspect]
     Active Substance: BEVACIZUMAB
     Indication: ADENOCARCINOMA
     Route: 065

REACTIONS (8)
  - Nausea [Unknown]
  - Adenomatous polyposis coli [Unknown]
  - Abdominal pain [Unknown]
  - Hypophagia [Unknown]
  - Neoplasm [Unknown]
  - Drug ineffective [Unknown]
  - Vomiting [Unknown]
  - Peutz-Jeghers syndrome [Unknown]
